FAERS Safety Report 19313068 (Version 1)
Quarter: 2021Q2

REPORT INFORMATION
  Report Type: Spontaneous
  Country: CN (occurrence: CN)
  Receive Date: 20210527
  Receipt Date: 20210527
  Transmission Date: 20210717
  Serious: Yes (Other)
  Sender: FDA-Public Use
  Company Number: CN-EMD SERONO-9240125

PATIENT
  Age: 71 Year
  Sex: Female

DRUGS (1)
  1. GLUCOPHAGE [Suspect]
     Active Substance: METFORMIN HYDROCHLORIDE
     Indication: TYPE 2 DIABETES MELLITUS
     Route: 048
     Dates: start: 20210408, end: 20210410

REACTIONS (2)
  - Vomiting [Recovering/Resolving]
  - Electrocardiogram change [Recovering/Resolving]

NARRATIVE: CASE EVENT DATE: 20210409
